FAERS Safety Report 20947453 (Version 1)
Quarter: 2022Q2

REPORT INFORMATION
  Report Type: Spontaneous
  Country: CN (occurrence: CN)
  Receive Date: 20220610
  Receipt Date: 20220610
  Transmission Date: 20220721
  Serious: Yes (Hospitalization, Other)
  Sender: FDA-Public Use
  Company Number: None

PATIENT
  Age: 54 Year
  Sex: Female
  Weight: 49 kg

DRUGS (4)
  1. CYCLOPHOSPHAMIDE [Suspect]
     Active Substance: CYCLOPHOSPHAMIDE
     Indication: Breast cancer female
     Dosage: INJECTION, CYCLOPHOSPHAMIDE (0.87 G) + SODIUM CHLORIDE (100 ML)
     Route: 041
     Dates: start: 20220519, end: 20220519
  2. PIRARUBICIN HYDROCHLORIDE [Suspect]
     Active Substance: PIRARUBICIN HYDROCHLORIDE
     Indication: Breast cancer female
     Dosage: PIRARUBICIN HYDROCHLORIDE (70 MG) + GLUCOSE (100 ML)
     Route: 041
     Dates: start: 20220519, end: 20220519
  3. SODIUM CHLORIDE [Suspect]
     Active Substance: SODIUM CHLORIDE
     Indication: Medication dilution
     Dosage: CYCLOPHOSPHAMIDE (0.87 G) + SODIUM CHLORIDE (100 ML)
     Route: 041
     Dates: start: 20220519, end: 20220519
  4. DEXTROSE [Suspect]
     Active Substance: DEXTROSE
     Indication: Medication dilution
     Dosage: PIRARUBICIN HYDROCHLORIDE (70 MG) + GLUCOSE (100 ML)
     Route: 041
     Dates: start: 20220519, end: 20220519

REACTIONS (3)
  - Papule [Recovering/Resolving]
  - Pustule [Recovering/Resolving]
  - Pain [Recovering/Resolving]

NARRATIVE: CASE EVENT DATE: 20220525
